FAERS Safety Report 8113113-8 (Version None)
Quarter: 2012Q1

REPORT INFORMATION
  Report Type: 
  Country: None (occurrence: None)
  Receive Date: 20120131
  Receipt Date: 20120120
  Transmission Date: 20120608
  Serious: Yes (Death, Hospitalization)
  Sender: FDA-Public Use
  Company Number: 1000027433

PATIENT
  Age: 72 Year
  Sex: Male

DRUGS (4)
  1. MEMANTINE HYDROCHLORIDE [Suspect]
     Indication: DEMENTIA
     Dosage: 10 MG (10 MG, 1 IN 1 D), ORAL
     Route: 048
     Dates: start: 20110101, end: 20111209
  2. ANPLAG (SARPOGRELATE HYDROCHLORIDE) [Concomitant]
  3. ARICEPT [Concomitant]
  4. MEMANTINE HYDROCHLORIDE [Suspect]
     Indication: DEMENTIA
     Dosage: 5 MG ( 5 MG, 1 IN 1 D), ORAL
     Route: 048
     Dates: start: 20110607, end: 20110101

REACTIONS (6)
  - ASPARTATE AMINOTRANSFERASE INCREASED [None]
  - LYMPHOCYTE TRANSFORMATION TEST POSITIVE [None]
  - ALANINE AMINOTRANSFERASE INCREASED [None]
  - JAUNDICE [None]
  - LIVER DISORDER [None]
  - BLOOD BILIRUBIN INCREASED [None]
